FAERS Safety Report 18394875 (Version 2)
Quarter: 2020Q4

REPORT INFORMATION
  Report Type: Report from Study
  Country: US (occurrence: US)
  Receive Date: 20201017
  Receipt Date: 20201122
  Transmission Date: 20210114
  Serious: Yes (Hospitalization)
  Sender: FDA-Public Use
  Company Number: NVSC2020US278722

PATIENT
  Age: 56 Year
  Sex: Female

DRUGS (1)
  1. COSENTYX [Suspect]
     Active Substance: SECUKINUMAB
     Indication: PSORIASIS
     Dosage: 300 MG (300 MG (2 PENS) AT WEEK 4 THEN 300 MG (2 PENS) EVERY 4 WEEKS THEREAFTER)
     Route: 058

REACTIONS (1)
  - Sepsis [Recovering/Resolving]
